FAERS Safety Report 11690051 (Version 1)
Quarter: 2015Q4

REPORT INFORMATION
  Report Type: Spontaneous
  Country: US (occurrence: None)
  Receive Date: 20151030
  Receipt Date: 20151030
  Transmission Date: 20160304
  Serious: Yes (Hospitalization)
  Sender: FDA-Public Use
  Company Number: None

PATIENT
  Age: 37 Year
  Sex: Male
  Weight: 88.3 kg

DRUGS (5)
  1. ITRACONAZOLE. [Concomitant]
     Active Substance: ITRACONAZOLE
  2. PIPERICILLIN [Concomitant]
  3. VANCOMYCIN [Suspect]
     Active Substance: VANCOMYCIN
  4. IDARUBICIN [Suspect]
     Active Substance: IDARUBICIN
     Dates: end: 20150910
  5. CYTARABINE. [Suspect]
     Active Substance: CYTARABINE
     Dates: end: 20150911

REACTIONS (5)
  - Mental status changes [None]
  - Sepsis [None]
  - Neutropenia [None]
  - Tachycardia [None]
  - Tooth abscess [None]

NARRATIVE: CASE EVENT DATE: 20150912
